FAERS Safety Report 6092472-4 (Version None)
Quarter: 2009Q1

REPORT INFORMATION
  Report Type: 
  Country: None (occurrence: None)
  Receive Date: 20090225
  Receipt Date: 20090218
  Transmission Date: 20090719
  Serious: Yes (Other)
  Sender: FDA-Public Use
  Company Number: FR-PFIZER INC-2009173677

PATIENT

DRUGS (1)
  1. TAHOR [Suspect]
     Dosage: 40 MG, 1X/DAY

REACTIONS (1)
  - CYTOLYTIC HEPATITIS [None]
